FAERS Safety Report 10066570 (Version 2)
Quarter: 2014Q3

REPORT INFORMATION
  Report Type: Spontaneous
  Country: FR (occurrence: FR)
  Receive Date: 20140408
  Receipt Date: 20140801
  Transmission Date: 20150326
  Serious: Yes (Hospitalization)
  Sender: FDA-Public Use
  Company Number: PHHY2014FR039688

PATIENT
  Age: 41 Year
  Sex: Female

DRUGS (6)
  1. DESFLURANE [Concomitant]
     Active Substance: DESFLURANE
  2. DIPRIVAN [Concomitant]
     Active Substance: PROPOFOL
  3. TRACRIUM [Concomitant]
     Active Substance: ATRACURIUM BESYLATE
     Route: 065
  4. HYPNOVEL [Concomitant]
     Active Substance: MIDAZOLAM\MIDAZOLAM HYDROCHLORIDE
     Route: 065
  5. AMOXICILLIN CLAVULANIC ACID SANDOZ [Suspect]
     Active Substance: AMOXICILLIN\CLAVULANIC ACID
     Indication: ANTIBIOTIC PROPHYLAXIS
     Dosage: UNK
     Route: 042
     Dates: start: 20140314, end: 20140314
  6. SUFENTA [Concomitant]
     Active Substance: SUFENTANIL CITRATE
     Route: 065

REACTIONS (2)
  - Renal failure acute [Recovered/Resolved]
  - Haematuria [Recovered/Resolved]

NARRATIVE: CASE EVENT DATE: 20140314
